FAERS Safety Report 14555180 (Version 2)
Quarter: 2018Q1

REPORT INFORMATION
  Report Type: Report from Study
  Country: US (occurrence: US)
  Receive Date: 20180220
  Receipt Date: 20180322
  Transmission Date: 20180509
  Serious: Yes (Hospitalization)
  Sender: FDA-Public Use
  Company Number: US-ACTELION-A-US2018-167733

PATIENT
  Age: 68 Year
  Sex: Male
  Weight: 109.3 kg

DRUGS (2)
  1. UPTRAVI [Suspect]
     Active Substance: SELEXIPAG
     Indication: PULMONARY HYPERTENSION
     Dosage: 200 MCG, BID
     Route: 048
  2. XARELTO [Concomitant]
     Active Substance: RIVAROXABAN

REACTIONS (9)
  - Renal failure [Unknown]
  - Coordination abnormal [Unknown]
  - Dysarthria [Unknown]
  - Hyperkalaemia [Unknown]
  - Fall [Unknown]
  - Dialysis [Unknown]
  - Unevaluable event [Unknown]
  - Cardiac failure [Unknown]
  - Gait disturbance [Unknown]
